FAERS Safety Report 14889683 (Version 1)
Quarter: 2018Q2

REPORT INFORMATION
  Report Type: Other
  Country: DE (occurrence: DE)
  Receive Date: 20180514
  Receipt Date: 20180514
  Transmission Date: 20180711
  Serious: No
  Sender: FDA-Public Use
  Company Number: DE-LUPIN PHARMACEUTICALS INC.-2018-00889

PATIENT
  Age: 28 Year
  Sex: Male
  Weight: 62 kg

DRUGS (4)
  1. LIORESAL [Interacting]
     Active Substance: BACLOFEN
     Indication: MUSCLE SPASTICITY
     Dosage: 150 MCG, QD
     Route: 037
     Dates: start: 2008
  2. LEVETIRACETAM. [Suspect]
     Active Substance: LEVETIRACETAM
     Indication: EPILEPSY
     Dosage: 10 ML, BID
     Route: 065
     Dates: start: 20180124
  3. LIORESAL [Interacting]
     Active Substance: BACLOFEN
     Dosage: 68 MCG, QD
     Route: 037
  4. LIORESAL [Interacting]
     Active Substance: BACLOFEN
     Dosage: 130 MCG, QD
     Route: 037
     Dates: start: 20180129

REACTIONS (4)
  - Muscular weakness [Not Recovered/Not Resolved]
  - Drug interaction [Unknown]
  - Fatigue [Recovering/Resolving]
  - Hypotonia [Not Recovered/Not Resolved]

NARRATIVE: CASE EVENT DATE: 20180124
